FAERS Safety Report 25364645 (Version 1)
Quarter: 2025Q2

REPORT INFORMATION
  Report Type: Spontaneous
  Country: JP (occurrence: JP)
  Receive Date: 20250527
  Receipt Date: 20250527
  Transmission Date: 20250717
  Serious: Yes (Other)
  Sender: CSL BEHRING
  Company Number: JP-CHUGAI-2025011692

PATIENT
  Age: 82 Year
  Sex: Female

DRUGS (1)
  1. MIRCERA [Suspect]
     Active Substance: METHOXY POLYETHYLENE GLYCOL-EPOETIN BETA
     Indication: Nephrogenic anaemia
     Route: 058

REACTIONS (2)
  - Death [Fatal]
  - Haemoglobin decreased [Unknown]

NARRATIVE: CASE EVENT DATE: 20250101
